FAERS Safety Report 18090717 (Version 1)
Quarter: 2020Q3

REPORT INFORMATION
  Report Type: Spontaneous
  Country: US (occurrence: US)
  Receive Date: 20200729
  Receipt Date: 20200729
  Transmission Date: 20201103
  Serious: Yes (Hospitalization)
  Sender: FDA-Public Use
  Company Number: None

PATIENT
  Age: 50 Year
  Sex: Male

DRUGS (1)
  1. CAPECITABINE 500MG TAB [Suspect]
     Active Substance: CAPECITABINE
     Indication: APPENDIX CANCER
     Dosage: ?  OTHER ROUTE:PO 14 D ON 7 D OFF?
     Dates: start: 20190615

REACTIONS (2)
  - Surgery [None]
  - Product dose omission issue [None]

NARRATIVE: CASE EVENT DATE: 20200725
